FAERS Safety Report 7792187-8 (Version None)
Quarter: 2011Q4

REPORT INFORMATION
  Report Type: 
  Country: None (occurrence: None)
  Receive Date: 20111003
  Receipt Date: 20111003
  Transmission Date: 20120403
  Serious: Yes (Other)
  Sender: FDA-Public Use
  Company Number: None

PATIENT
  Age: 28 Year
  Sex: Male
  Weight: 59.874 kg

DRUGS (1)
  1. CITALOPRAM HYDROBROMIDE [Suspect]
     Indication: DEPRESSION
     Dosage: 10 MG -HALF A PILL-
     Route: 048
     Dates: start: 20110926, end: 20110926

REACTIONS (7)
  - SCROTAL DISORDER [None]
  - GENITAL DISORDER MALE [None]
  - TESTICULAR PAIN [None]
  - TESTICULAR DISORDER [None]
  - ERECTILE DYSFUNCTION [None]
  - DISCOMFORT [None]
  - MUSCLE SPASMS [None]
